FAERS Safety Report 8452241-4 (Version None)
Quarter: 2012Q2

REPORT INFORMATION
  Report Type: 
  Country: None (occurrence: None)
  Receive Date: 20120620
  Receipt Date: 20120614
  Transmission Date: 20120825
  Serious: Yes (Other)
  Sender: FDA-Public Use
  Company Number: US-BAYER-2011-104159

PATIENT
  Age: 59 Year
  Sex: Male

DRUGS (20)
  1. VERAPAMIL [Concomitant]
  2. LASIX [Concomitant]
  3. COUMADIN [Concomitant]
     Indication: ATRIAL FIBRILLATION
  4. MAGNEVIST [Suspect]
  5. OMNISCAN [Suspect]
  6. GADOLINIUM IN UNSPECIFIED DRUG [Suspect]
     Indication: ANGIOGRAM PERIPHERAL
     Dosage: UNK
     Dates: start: 20031024, end: 20031024
  7. CLONIDINE [Concomitant]
  8. EPOGEN [Concomitant]
  9. MINOXIDIL [Concomitant]
  10. ALBUTEROL [Concomitant]
  11. CALCITRIOL [Concomitant]
  12. LANOXIN [Concomitant]
  13. OPTIMARK [Suspect]
  14. RENAGEL [Concomitant]
  15. SENSIPAR [Concomitant]
  16. GADOLINIUM IN UNSPECIFIED DRUG [Suspect]
     Indication: ANGIOGRAM
     Dosage: UNK
     Dates: start: 20030717, end: 20030717
  17. GLYBURIDE [Concomitant]
  18. FLOVENT [Concomitant]
  19. INSULIN [Concomitant]
  20. IRON SULFATETHIAMIN COMPOUND TAB [Concomitant]

REACTIONS (10)
  - FIBROSIS [None]
  - SKIN HYPERPIGMENTATION [None]
  - OEDEMA PERIPHERAL [None]
  - NEPHROGENIC SYSTEMIC FIBROSIS [None]
  - SKIN DISCOLOURATION [None]
  - MUSCULAR WEAKNESS [None]
  - INDURATION [None]
  - HEMIPARESIS [None]
  - POST THROMBOTIC SYNDROME [None]
  - JOINT STIFFNESS [None]
